FAERS Safety Report 23200060 (Version 1)
Quarter: 2023Q4

REPORT INFORMATION
  Report Type: Spontaneous
  Country: FR (occurrence: FR)
  Receive Date: 20231117
  Receipt Date: 20231117
  Transmission Date: 20240109
  Serious: Yes (Life-Threatening, Other)
  Sender: FDA-Public Use
  Company Number: FR-AFSSAPS-RN2023001170

PATIENT
  Age: 70 Year
  Sex: Female
  Weight: 75 kg

DRUGS (4)
  1. OLANZAPINE [Suspect]
     Active Substance: OLANZAPINE
     Indication: Schizophreniform disorder
     Dosage: 15 MILLIGRAM, ONCE A DAY, 15 MG PAR JOUR
     Route: 065
  2. CEFTRIAXONE [Suspect]
     Active Substance: CEFTRIAXONE\CEFTRIAXONE SODIUM
     Indication: Intervertebral discitis
     Dosage: UNK
     Route: 042
     Dates: start: 20230926, end: 20231002
  3. CEFTRIAXONE [Suspect]
     Active Substance: CEFTRIAXONE\CEFTRIAXONE SODIUM
     Dosage: 1 GRAM, TWO TIMES A DAY
     Route: 042
     Dates: start: 20231020
  4. PIPERACILLIN SODIUM\TAZOBACTAM SODIUM [Concomitant]
     Active Substance: PIPERACILLIN SODIUM\TAZOBACTAM SODIUM
     Indication: Intervertebral discitis
     Dosage: UNK
     Route: 065
     Dates: start: 20231002, end: 20231020

REACTIONS (1)
  - Agranulocytosis [Not Recovered/Not Resolved]

NARRATIVE: CASE EVENT DATE: 20231025
